FAERS Safety Report 6182778-2 (Version None)
Quarter: 2009Q2

REPORT INFORMATION
  Report Type: 
  Country: None (occurrence: None)
  Receive Date: 20090507
  Receipt Date: 20090507
  Transmission Date: 20091009
  Serious: Yes (Other)
  Sender: FDA-Public Use
  Company Number: DE-PFIZER INC-2008101237

PATIENT

DRUGS (2)
  1. XALATAN [Suspect]
     Route: 047
     Dates: end: 20080101
  2. AZOPT [Concomitant]

REACTIONS (1)
  - EXTRASYSTOLES [None]
